FAERS Safety Report 5105660-8 (Version None)
Quarter: 2006Q3

REPORT INFORMATION
  Report Type: 
  Country: None (occurrence: None)
  Receive Date: 20060731
  Receipt Date: 20060330
  Transmission Date: 20061208
  Serious: Yes (Other)
  Sender: FDA-Public Use
  Company Number: US-JNJFOC-20060400568

PATIENT
  Age: 58 Year
  Sex: Male

DRUGS (1)
  1. RISPERDAL [Suspect]
     Indication: BIPOLAR DISORDER
     Dosage: 2 MG, 2 IN 1 DAY, ORAL
     Route: 048
     Dates: start: 20000101

REACTIONS (1)
  - TARDIVE DYSKINESIA [None]
